FAERS Safety Report 10267771 (Version 1)
Quarter: 2014Q2

REPORT INFORMATION
  Report Type: Spontaneous
  Country: RS (occurrence: RS)
  Receive Date: 20140630
  Receipt Date: 20140630
  Transmission Date: 20141212
  Serious: Yes (Other)
  Sender: FDA-Public Use
  Company Number: RS-BAYER-2014-093859

PATIENT
  Age: 33 Year
  Sex: Male

DRUGS (1)
  1. GADOVIST [Suspect]
     Indication: NUCLEAR MAGNETIC RESONANCE IMAGING
     Dosage: 8 ML, ONCE
     Dates: start: 20140613, end: 20140613

REACTIONS (3)
  - Asphyxia [Recovered/Resolved]
  - Pruritus [Recovered/Resolved]
  - Urticaria [Recovered/Resolved]
